FAERS Safety Report 11820657 (Version 1)
Quarter: 2015Q4

REPORT INFORMATION
  Report Type: Spontaneous
  Country: US (occurrence: US)
  Receive Date: 20151210
  Receipt Date: 20151210
  Transmission Date: 20160305
  Serious: No
  Sender: FDA-Public Use
  Company Number: US-JNJFOC-20150711428

PATIENT
  Sex: Male

DRUGS (8)
  1. ONDANSETRON HYDROCHLORIDE. [Concomitant]
     Active Substance: ONDANSETRON HYDROCHLORIDE
  2. CEPHALEXIN. [Concomitant]
     Active Substance: CEPHALEXIN
  3. XYZAL [Concomitant]
     Active Substance: LEVOCETIRIZINE DIHYDROCHLORIDE
  4. FLUTICASONE PROPIONATE. [Concomitant]
     Active Substance: FLUTICASONE PROPIONATE
  5. FLUVAX [Concomitant]
     Active Substance: INFLUENZA VIRUS VACCINE
  6. IMBRUVICA [Suspect]
     Active Substance: IBRUTINIB
     Indication: CHRONIC LYMPHOCYTIC LEUKAEMIA
     Route: 048
  7. IMBRUVICA [Suspect]
     Active Substance: IBRUTINIB
     Indication: CHRONIC LYMPHOCYTIC LEUKAEMIA
     Route: 048
     Dates: start: 20140419
  8. ATIVAN [Concomitant]
     Active Substance: LORAZEPAM

REACTIONS (3)
  - Weight decreased [Unknown]
  - Blood count abnormal [Unknown]
  - Gastroenteritis viral [Unknown]
